FAERS Safety Report 5175568-0 (Version None)
Quarter: 2006Q4

REPORT INFORMATION
  Report Type: 
  Country: None (occurrence: None)
  Receive Date: 20061215
  Receipt Date: 20061206
  Transmission Date: 20070319
  Serious: Yes (Death)
  Sender: FDA-Public Use
  Company Number: FR-JNJFOC-20061201905

PATIENT
  Age: 76 Year
  Sex: Female

DRUGS (16)
  1. RISPERDAL [Suspect]
     Indication: DRUG USE FOR UNKNOWN INDICATION
     Route: 048
  2. VAXIGRIP [Suspect]
     Indication: INFLUENZA IMMUNISATION
     Route: 058
  3. PLAVIX [Concomitant]
     Route: 065
  4. VALIUM [Concomitant]
     Route: 065
  5. ZOLPIDEM TARTRATE [Concomitant]
     Route: 065
  6. ZANTAC [Concomitant]
     Route: 065
  7. CARDIOCALM [Concomitant]
     Route: 065
  8. DIFFU-K [Concomitant]
     Route: 065
  9. GENESERINE [Concomitant]
     Route: 065
  10. LEVOTHYROXINE SODIUM [Concomitant]
  11. PRETERAX [Concomitant]
     Route: 065
  12. SINEMET [Concomitant]
  13. TRINIPATCH [Concomitant]
  14. VASTAREL [Concomitant]
  15. ZYPREXA [Concomitant]
  16. LINDILANE [Concomitant]

REACTIONS (2)
  - BRONCHITIS [None]
  - PYREXIA [None]
